FAERS Safety Report 5637564-6 (Version None)
Quarter: 2008Q1

REPORT INFORMATION
  Report Type: 
  Country: None (occurrence: None)
  Receive Date: 20080225
  Receipt Date: 20080215
  Transmission Date: 20080703
  Serious: Yes (Hospitalization)
  Sender: FDA-Public Use
  Company Number: JP-PFIZER INC-2008014938

PATIENT
  Age: 22 Year
  Sex: Male

DRUGS (3)
  1. SOLU-MEDROL [Suspect]
     Route: 042
  2. TACROLIMUS [Concomitant]
     Dates: start: 20020101, end: 20030101
  3. MYCOPHENOLATE MOFETIL [Concomitant]
     Dates: start: 20020101, end: 20030101

REACTIONS (1)
  - LYMPHOPROLIFERATIVE DISORDER [None]
